FAERS Safety Report 4965811-2 (Version None)
Quarter: 2006Q2

REPORT INFORMATION
  Report Type: 
  Country: None (occurrence: None)
  Receive Date: 20060406
  Receipt Date: 20060406
  Transmission Date: 20061013
  Serious: Yes (Life-Threatening)
  Sender: FDA-Public Use
  Company Number: None

PATIENT
  Age: 36 Year
  Sex: Male
  Weight: 84.369 kg

DRUGS (2)
  1. RISPERDAL [Suspect]
     Dosage: .50 MM EVERY 2 WKS HIP BUTTOCKS
     Route: 030
     Dates: start: 20000101, end: 20040101
  2. ZYPREXA [Suspect]
     Dosage: - EVERYDAY ORAL
     Route: 048
     Dates: start: 19990101, end: 20000101

REACTIONS (9)
  - ARTHROPATHY [None]
  - CONDITION AGGRAVATED [None]
  - HAIR DISORDER [None]
  - INSOMNIA [None]
  - LIBIDO DECREASED [None]
  - LIGAMENT DISORDER [None]
  - NAIL DISORDER [None]
  - OXYGEN CONSUMPTION DECREASED [None]
  - SKIN DISORDER [None]
